FAERS Safety Report 9420101 (Version 1)
Quarter: 2013Q3

REPORT INFORMATION
  Report Type: Spontaneous
  Country: FR (occurrence: FR)
  Receive Date: 20130725
  Receipt Date: 20130725
  Transmission Date: 20140515
  Serious: Yes (Other)
  Sender: FDA-Public Use
  Company Number: FR-GLAXOSMITHKLINE-B0908267A

PATIENT
  Age: 67 Year
  Sex: Female
  Weight: 63 kg

DRUGS (9)
  1. ZOPHREN [Suspect]
     Indication: PROPHYLAXIS OF NAUSEA AND VOMITING
     Dosage: 8MG CYCLIC
     Route: 042
     Dates: start: 20130513, end: 20130516
  2. EMEND [Suspect]
     Indication: PROPHYLAXIS OF NAUSEA AND VOMITING
     Route: 048
     Dates: start: 20130513, end: 20130516
  3. METHYLPREDNISOLONE [Suspect]
     Indication: PREMEDICATION
     Dosage: 60MG CYCLIC
     Route: 042
     Dates: start: 20130513, end: 20130516
  4. 5FU [Concomitant]
     Indication: VOCAL CORD NEOPLASM
     Route: 065
     Dates: start: 20130513, end: 20130516
  5. CISPLATIN [Concomitant]
     Indication: VOCAL CORD NEOPLASM
     Dosage: 34MG CYCLIC
     Dates: start: 20130514, end: 20130516
  6. TAXOTERE [Concomitant]
     Indication: VOCAL CORD NEOPLASM
     Dosage: 128MG CYCLIC
     Dates: start: 20130514, end: 20130514
  7. POLARAMINE [Concomitant]
     Indication: PREMEDICATION
     Dates: start: 20130615, end: 20130615
  8. RANIPLEX [Concomitant]
     Indication: PREMEDICATION
     Route: 042
     Dates: start: 20130615, end: 20130615
  9. ERBITUX [Concomitant]
     Indication: VOCAL CORD NEOPLASM
     Route: 042
     Dates: start: 20130615

REACTIONS (6)
  - Erythema [Recovered/Resolved]
  - Pruritus [Recovered/Resolved]
  - Burning sensation [Recovered/Resolved]
  - Eyelid oedema [Recovered/Resolved]
  - Skin plaque [Recovered/Resolved]
  - Dysphagia [Recovered/Resolved]
